FAERS Safety Report 9485300 (Version 2)
Quarter: 2013Q3

REPORT INFORMATION
  Report Type: Report from Study
  Country: US (occurrence: US)
  Receive Date: 20130828
  Receipt Date: 20130902
  Transmission Date: 20140515
  Serious: Yes (Hospitalization)
  Sender: FDA-Public Use
  Company Number: US-ROCHE-1263849

PATIENT
  Age: 65 Year
  Sex: Female
  Weight: 116.7 kg

DRUGS (13)
  1. VEMURAFENIB [Suspect]
     Indication: MALIGNANT MELANOMA
     Route: 048
     Dates: start: 20130729, end: 20130813
  2. IMODIUM [Concomitant]
     Route: 065
     Dates: start: 201306, end: 201306
  3. LOMOTIL (UNITED STATES) [Concomitant]
  4. ADVIL [Concomitant]
  5. TYLENOL [Concomitant]
     Route: 065
  6. KEPPRA [Concomitant]
     Route: 065
     Dates: start: 20100101
  7. KEPPRA [Concomitant]
     Route: 065
     Dates: start: 20100101
  8. LISINOPRIL [Concomitant]
     Route: 065
     Dates: start: 20030101
  9. ZOCOR [Concomitant]
     Route: 065
     Dates: start: 20030101
  10. HYDROMORPHONE [Concomitant]
     Route: 065
     Dates: start: 20120101
  11. XANAX [Concomitant]
     Route: 065
     Dates: start: 20120101
  12. PAXIL [Concomitant]
     Route: 065
     Dates: start: 20100101
  13. GDC-0973 [Suspect]
     Indication: MALIGNANT MELANOMA
     Route: 048
     Dates: start: 20130813

REACTIONS (1)
  - Diarrhoea [Recovered/Resolved]
